FAERS Safety Report 9791845 (Version 1)
Quarter: 2014Q1

REPORT INFORMATION
  Report Type: Spontaneous
  Country: FR (occurrence: FR)
  Receive Date: 20140102
  Receipt Date: 20140102
  Transmission Date: 20141002
  Serious: Yes (Hospitalization)
  Sender: FDA-Public Use
  Company Number: FR-SA-2013SA133906

PATIENT
  Age: 69 Year
  Sex: Male

DRUGS (5)
  1. COAPROVEL [Suspect]
     Indication: HYPERTENSION
     Dosage: STRENGTH: 150/12.5 MG
     Route: 048
     Dates: end: 20131104
  2. VENLAFAXINE [Concomitant]
     Indication: DEPRESSION
     Dosage: FORM: EXTENDED RELEASE CAPSULE?STRENGTH: 75 MG
     Route: 048
     Dates: end: 20131104
  3. LANSOPRAZOLE [Concomitant]
     Dosage: STRENGTH: 30MG
     Route: 048
     Dates: end: 20131104
  4. DOMPERIDONE [Concomitant]
     Route: 048
     Dates: end: 20131104
  5. XANAX [Concomitant]
     Dosage: STRENGTH: 0.125 MG
     Route: 048
     Dates: end: 20131104

REACTIONS (2)
  - Hyponatraemic seizure [Recovered/Resolved]
  - Hyponatraemia [Recovered/Resolved]
